FAERS Safety Report 7801939-7 (Version None)
Quarter: 2011Q4

REPORT INFORMATION
  Report Type: 
  Country: None (occurrence: None)
  Receive Date: 20111007
  Receipt Date: 20111007
  Transmission Date: 20120403
  Serious: Yes (Death)
  Sender: FDA-Public Use
  Company Number: None

PATIENT
  Age: 37 Year
  Sex: Male
  Weight: 197.76 kg

DRUGS (27)
  1. LEVOTHYROXINE SODIUM [Concomitant]
     Route: 048
  2. AMLODIPINE [Concomitant]
     Route: 048
  3. SEROQUEL [Concomitant]
     Route: 048
  4. ASPIRIN [Concomitant]
     Route: 048
  5. PREDNISONE [Concomitant]
     Route: 048
  6. SEREVENT [Concomitant]
     Route: 048
  7. VOLTAREN [Concomitant]
     Route: 061
  8. BYETTA [Suspect]
     Indication: TYPE 2 DIABETES MELLITUS
     Dosage: 10 MCG
     Route: 058
     Dates: start: 20110705, end: 20110920
  9. HYDROXYZINE [Concomitant]
     Route: 048
  10. ASTEPRO NASAL SPRAY 0.1% [Concomitant]
     Route: 045
  11. DICYCLOMINE [Concomitant]
     Route: 048
  12. SERTRALINE HYDROCHLORIDE [Concomitant]
  13. METOCLOPRAMIDE [Concomitant]
     Route: 048
  14. CLONAZEPAM [Concomitant]
     Route: 048
  15. SEROQUEL [Concomitant]
     Route: 048
  16. VENTOLIN [Concomitant]
  17. PRAVASTATIN [Concomitant]
     Route: 048
  18. DEXILANT [Concomitant]
     Route: 048
  19. LORATADINE [Concomitant]
     Route: 048
  20. VICODIN [Concomitant]
     Route: 048
  21. NASONEX [Concomitant]
     Route: 045
  22. SINGULAIR [Concomitant]
     Route: 048
  23. ATROVENT HFA [Concomitant]
  24. SIMVASTATIN [Concomitant]
     Route: 048
  25. FLOVENT [Concomitant]
     Route: 045
  26. LISINOPRIL [Concomitant]
     Route: 048
  27. PROPRANOLOL [Concomitant]
     Route: 048

REACTIONS (1)
  - PANCREATITIS [None]
